FAERS Safety Report 5272217-8 (Version None)
Quarter: 2007Q1

REPORT INFORMATION
  Report Type: 
  Country: None (occurrence: None)
  Receive Date: 20070322
  Receipt Date: 20061219
  Transmission Date: 20070707
  Serious: No
  Sender: FDA-Public Use
  Company Number: US-GLAXOSMITHKLINE-A0632126A

PATIENT
  Age: 54 Year
  Sex: Female

DRUGS (5)
  1. AVANDARYL [Suspect]
     Dosage: 1TAB PER DAY
     Route: 048
     Dates: start: 20060601
  2. FOSINOPRIL SODIUM [Concomitant]
  3. TIMOLOL MALEATE [Concomitant]
  4. XALATAN [Concomitant]
  5. HYDROCHLOROTHIAZIDE [Concomitant]

REACTIONS (1)
  - WEIGHT INCREASED [None]
